FAERS Safety Report 5930407-2 (Version None)
Quarter: 2008Q4

REPORT INFORMATION
  Report Type: 
  Country: None (occurrence: None)
  Receive Date: 20081021
  Receipt Date: 20081014
  Transmission Date: 20090506
  Serious: Yes (Hospitalization)
  Sender: FDA-Public Use
  Company Number: JPI-P-005054

PATIENT
  Age: 59 Year
  Sex: Female
  Weight: 53.978 kg

DRUGS (3)
  1. XYREM [Suspect]
     Indication: NARCOLEPSY
     Dosage: 4.5 GM (2.25 GM, 2 IN 1 D) ,ORAL; 6 GM (3GM, 2 IN 1 D) ,ORAL; (5 GM, 1 D) ,ORAL; (7 GM, 1 D) ,ORAL
     Route: 048
     Dates: start: 20080827
  2. XYREM [Suspect]
     Indication: NARCOLEPSY
     Dosage: 4.5 GM (2.25 GM, 2 IN 1 D) ,ORAL; 6 GM (3GM, 2 IN 1 D) ,ORAL; (5 GM, 1 D) ,ORAL; (7 GM, 1 D) ,ORAL
     Route: 048
     Dates: start: 20080901
  3. XYREM [Suspect]
     Indication: NARCOLEPSY
     Dosage: 4.5 GM (2.25 GM, 2 IN 1 D) ,ORAL; 6 GM (3GM, 2 IN 1 D) ,ORAL; (5 GM, 1 D) ,ORAL; (7 GM, 1 D) ,ORAL
     Route: 048
     Dates: start: 20080902

REACTIONS (9)
  - BLOOD POTASSIUM DECREASED [None]
  - CONDITION AGGRAVATED [None]
  - CONSTIPATION [None]
  - DEHYDRATION [None]
  - DIZZINESS [None]
  - DRY MOUTH [None]
  - DYSGEUSIA [None]
  - NIGHT SWEATS [None]
  - VULVOVAGINAL DRYNESS [None]
